FAERS Safety Report 7532335-8 (Version None)
Quarter: 2011Q2

REPORT INFORMATION
  Report Type: 
  Country: None (occurrence: None)
  Receive Date: 20110601
  Receipt Date: 20110518
  Transmission Date: 20111010
  Serious: Yes (Other)
  Sender: FDA-Public Use
  Company Number: 20109649

PATIENT
  Sex: Female

DRUGS (1)
  1. LIORESAL [Suspect]
     Indication: MUSCLE SPASTICITY
     Dosage: 450 MCG, DAILY, INTRATHECAL
     Route: 037

REACTIONS (9)
  - SWELLING [None]
  - MASS [None]
  - INFECTION [None]
  - HYPERTONIA [None]
  - SOFT TISSUE DISORDER [None]
  - UNDERDOSE [None]
  - DEVICE COMPUTER ISSUE [None]
  - INFUSION SITE ABSCESS [None]
  - INFLAMMATION [None]
